FAERS Safety Report 4555555-3 (Version None)
Quarter: 2005Q1

REPORT INFORMATION
  Report Type: 
  Country: None (occurrence: None)
  Receive Date: 20050118
  Receipt Date: 20050118
  Transmission Date: 20050727
  Serious: Yes (Other)
  Sender: FDA-Public Use
  Company Number: None

PATIENT
  Age: 31 Year
  Sex: Male
  Weight: 81.4 kg

DRUGS (4)
  1. SEROQUEL [Suspect]
     Indication: ABNORMAL BEHAVIOUR
     Dosage: 200 MG Q12 H PO
     Route: 048
     Dates: start: 20040827
  2. DEPAKOTE [Concomitant]
  3. GLUCOPHAGE [Concomitant]
  4. ZOLOFT [Concomitant]

REACTIONS (1)
  - PLATELET COUNT DECREASED [None]
